FAERS Safety Report 6206989-2 (Version None)
Quarter: 2009Q2

REPORT INFORMATION
  Report Type: 
  Country: None (occurrence: None)
  Receive Date: 20090528
  Receipt Date: 20090519
  Transmission Date: 20091009
  Serious: Yes (Other)
  Sender: FDA-Public Use
  Company Number: PHHY2009BE19380

PATIENT
  Sex: Female

DRUGS (5)
  1. RASILEZ [Suspect]
     Indication: HYPERTENSION
     Dosage: 300 MG, UNK
     Route: 048
     Dates: start: 20080824, end: 20090401
  2. CRESTOR [Concomitant]
     Dosage: UNK
  3. ANALGESICS [Concomitant]
     Indication: TENDONITIS
     Dosage: UNK
  4. LISINOPRIL [Concomitant]
     Dosage: UNK
     Dates: end: 20090401
  5. LIPANTHYL [Concomitant]
     Dosage: UNK
     Dates: end: 20090401

REACTIONS (3)
  - BLOOD CREATININE INCREASED [None]
  - GLOMERULAR FILTRATION RATE DECREASED [None]
  - RENAL FAILURE [None]
